FAERS Safety Report 9260501 (Version 1)
Quarter: 2013Q2

REPORT INFORMATION
  Report Type: Spontaneous
  Country: US (occurrence: US)
  Receive Date: 20130429
  Receipt Date: 20130429
  Transmission Date: 20140414
  Serious: Yes (Life-Threatening, Other)
  Sender: FDA-Public Use
  Company Number: US-ASTELLAS-2013US004455

PATIENT
  Age: 72 Year
  Sex: Male

DRUGS (1)
  1. LEXISCAN [Suspect]
     Indication: SCAN MYOCARDIAL PERFUSION
     Dosage: UNK
     Route: 065

REACTIONS (3)
  - Cardiac arrest [Recovered/Resolved]
  - Hyperhidrosis [Unknown]
  - Blood glucose abnormal [Unknown]
